FAERS Safety Report 5045179-6 (Version None)
Quarter: 2006Q3

REPORT INFORMATION
  Report Type: 
  Country: None (occurrence: None)
  Receive Date: 20060705
  Receipt Date: 20060613
  Transmission Date: 20061208
  Serious: Yes (Other)
  Sender: FDA-Public Use
  Company Number: USA030434572

PATIENT
  Age: 70 Year
  Sex: Female
  Weight: 54.5 kg

DRUGS (5)
  1. FORTEO [Suspect]
     Indication: OSTEOPOROSIS
     Dosage: 20 GU DAILY (1/D)
     Dates: start: 20030414, end: 20050401
  2. VITAMIN D [Concomitant]
  3. AVAPRO [Concomitant]
  4. LORAZEPAM [Concomitant]
  5. FORTEO [Concomitant]

REACTIONS (20)
  - ABNORMAL SENSATION IN EYE [None]
  - AMNESIA [None]
  - AORTIC VALVE STENOSIS [None]
  - ASTHENIA [None]
  - ATRIAL FIBRILLATION [None]
  - CONSTIPATION [None]
  - FATIGUE [None]
  - GAIT DISTURBANCE [None]
  - HEADACHE [None]
  - HERPES ZOSTER [None]
  - INJECTION SITE BRUISING [None]
  - INJECTION SITE ERYTHEMA [None]
  - INJECTION SITE HAEMORRHAGE [None]
  - INTERNATIONAL NORMALISED RATIO INCREASED [None]
  - NERVOUSNESS [None]
  - NEURALGIA [None]
  - PHARMACEUTICAL PRODUCT COMPLAINT [None]
  - SUPRAVENTRICULAR TACHYCARDIA [None]
  - VASCULAR CALCIFICATION [None]
  - VISION BLURRED [None]
